FAERS Safety Report 8164589-1 (Version None)
Quarter: 2012Q1

REPORT INFORMATION
  Report Type: 
  Country: None (occurrence: None)
  Receive Date: 20120227
  Receipt Date: 20120215
  Transmission Date: 20120608
  Serious: Yes (Other)
  Sender: FDA-Public Use
  Company Number: TW-RANBAXY-2012RR-52876

PATIENT
  Sex: Male

DRUGS (2)
  1. RISPERIDONE [Suspect]
     Indication: SCHIZOPHRENIA
     Dosage: 2 MG, BID
     Route: 065
  2. ARIPIPRAZOLE [Concomitant]
     Indication: PRODUCT USED FOR UNKNOWN INDICATION
     Dosage: UNK
     Route: 065

REACTIONS (2)
  - HYPERPROLACTINAEMIA [None]
  - GRANULOMA [None]
